FAERS Safety Report 16348579 (Version 1)
Quarter: 2019Q2

REPORT INFORMATION
  Report Type: Spontaneous
  Country: CA (occurrence: CA)
  Receive Date: 20190523
  Receipt Date: 20190523
  Transmission Date: 20190711
  Serious: Yes (Hospitalization)
  Sender: FDA-Public Use
  Company Number: CA-TEVA-2019-CA-1051230

PATIENT
  Age: 71 Year
  Sex: Male
  Weight: 94 kg

DRUGS (8)
  1. CAPECITABINE. [Suspect]
     Active Substance: CAPECITABINE
     Indication: COLON CANCER
     Dosage: 4000 MILLIGRAM DAILY;
     Route: 048
  2. DEXAMETHASONE. [Concomitant]
     Active Substance: DEXAMETHASONE
  3. ONDANSETRON [Concomitant]
     Active Substance: ONDANSETRON
  4. FRAGMIN [Concomitant]
     Active Substance: DALTEPARIN SODIUM
  5. OXALIPLATIN. [Concomitant]
     Active Substance: OXALIPLATIN
  6. METOCLOPRAMIDE. [Concomitant]
     Active Substance: METOCLOPRAMIDE
  7. LORAZEPAM. [Concomitant]
     Active Substance: LORAZEPAM
  8. OMEPRAZOLE. [Concomitant]
     Active Substance: OMEPRAZOLE

REACTIONS (4)
  - Chest discomfort [Recovered/Resolved]
  - Dyspnoea [Recovered/Resolved]
  - Hyperhidrosis [Recovered/Resolved]
  - Pain [Recovered/Resolved]
